FAERS Safety Report 15105520 (Version 1)
Quarter: 2018Q3

REPORT INFORMATION
  Report Type: Spontaneous
  Country: IN (occurrence: IN)
  Receive Date: 20180704
  Receipt Date: 20180704
  Transmission Date: 20181010
  Serious: Yes (Hospitalization, Other)
  Sender: FDA-Public Use
  Company Number: IN-BION-007282

PATIENT
  Age: 53 Year
  Sex: Male

DRUGS (2)
  1. CEFTAZIDIME/CEFTAZIDIME PENTAHYDRATE [Suspect]
     Active Substance: CEFTAZIDIME
     Indication: INFECTION
     Route: 042
  2. DICLOFENAC POTASSIUM. [Suspect]
     Active Substance: DICLOFENAC POTASSIUM
     Indication: ANALGESIC THERAPY

REACTIONS (4)
  - Melaena [Unknown]
  - Thrombocytopenia [Recovering/Resolving]
  - Jaundice [Unknown]
  - Mucosal haemorrhage [Unknown]
